FAERS Safety Report 22018192 (Version 1)
Quarter: 2023Q1

REPORT INFORMATION
  Report Type: Report from Study
  Country: US (occurrence: US)
  Receive Date: 20230221
  Receipt Date: 20230221
  Transmission Date: 20230418
  Serious: Yes (Hospitalization, Other)
  Sender: FDA-Public Use
  Company Number: US-GILEAD-2023-0617527

PATIENT
  Sex: Female

DRUGS (4)
  1. AMBRISENTAN [Suspect]
     Active Substance: AMBRISENTAN
     Indication: Pulmonary arterial hypertension
     Dosage: 10 MG, QD
     Route: 065
     Dates: start: 20211209
  2. TREPROSTINIL [Concomitant]
     Active Substance: TREPROSTINIL
  3. OFEV [Concomitant]
     Active Substance: NINTEDANIB
  4. XARELTO [Concomitant]
     Active Substance: RIVAROXABAN

REACTIONS (2)
  - Infection [Unknown]
  - Pneumonia [Unknown]
